FAERS Safety Report 15843093 (Version 3)
Quarter: 2020Q4

REPORT INFORMATION
  Report Type: Report from Study
  Country: None (occurrence: US)
  Receive Date: 20190118
  Receipt Date: 20201119
  Transmission Date: 20210113
  Serious: Yes (Hospitalization)
  Sender: FDA-Public Use
  Company Number: US-INSMED, INC.-US-INS-18-00265

PATIENT
  Age: 51 Year
  Sex: Male

DRUGS (1)
  1. ARIKAYCE [Suspect]
     Active Substance: AMIKACIN
     Indication: PRODUCT USED FOR UNKNOWN INDICATION
     Route: 055
     Dates: start: 201811

REACTIONS (10)
  - Decreased appetite [Unknown]
  - Vomiting [Unknown]
  - Dehydration [Unknown]
  - Chills [Unknown]
  - Pyrexia [Unknown]
  - Nausea [Unknown]
  - Weight decreased [Unknown]
  - Cardiac disorder [Unknown]
  - Influenza like illness [Unknown]
  - Chest pain [Unknown]

NARRATIVE: CASE EVENT DATE: 201811
